FAERS Safety Report 18058658 (Version 1)
Quarter: 2020Q3

REPORT INFORMATION
  Report Type: Spontaneous
  Country: US (occurrence: US)
  Receive Date: 20200723
  Receipt Date: 20200723
  Transmission Date: 20201103
  Serious: Yes (Other)
  Sender: FDA-Public Use
  Company Number: US-GLAXOSMITHKLINE-US2020AMR138516

PATIENT
  Age: 45 Year
  Sex: Female

DRUGS (2)
  1. LAMICTAL XR [Suspect]
     Active Substance: LAMOTRIGINE
     Dosage: 100 MG, BID TAKE 1
     Route: 048
  2. LAMICTAL XR [Suspect]
     Active Substance: LAMOTRIGINE
     Indication: SEIZURE
     Dosage: 2 PUFF(S), 200MG TAKES 2 TABLETS BY MOUTH DAILY
     Route: 048

REACTIONS (3)
  - Seizure [Unknown]
  - Intentional underdose [Unknown]
  - Sinus disorder [Unknown]

NARRATIVE: CASE EVENT DATE: 202006
